FAERS Safety Report 5284832-6 (Version None)
Quarter: 2007Q1

REPORT INFORMATION
  Report Type: 
  Country: None (occurrence: None)
  Receive Date: 20061229
  Receipt Date: 20051220
  Transmission Date: 20070707
  Serious: Yes (Other)
  Sender: FDA-Public Use
  Company Number: PHEH2005US13740

PATIENT
  Age: 43 Year
  Sex: Male

DRUGS (2)
  1. CLOZARIL [Suspect]
     Dosage: SEE IMAGE
     Route: 048
     Dates: start: 20050301, end: 20051206
  2. CLOZARIL [Suspect]
     Dosage: SEE IMAGE
     Route: 048
     Dates: start: 20051220

REACTIONS (4)
  - EXTRAPYRAMIDAL DISORDER [None]
  - PSYCHOMOTOR HYPERACTIVITY [None]
  - TREMOR [None]
  - WHITE BLOOD CELL COUNT DECREASED [None]
